FAERS Safety Report 14790514 (Version 1)
Quarter: 2018Q2

REPORT INFORMATION
  Report Type: Spontaneous
  Country: FR (occurrence: FR)
  Receive Date: 20180423
  Receipt Date: 20180423
  Transmission Date: 20180711
  Serious: Yes (Death, Hospitalization)
  Sender: FDA-Public Use
  Company Number: FR-MYLANLABS-2018M1024754

PATIENT
  Age: 65 Year
  Sex: Male

DRUGS (4)
  1. RIFAMPICIN [Suspect]
     Active Substance: RIFAMPIN
     Indication: ENDOCARDITIS STAPHYLOCOCCAL
     Dosage: 600 MG
     Route: 065
  2. CEFAZOLIN [Suspect]
     Active Substance: CEFAZOLIN
     Indication: ENDOCARDITIS STAPHYLOCOCCAL
     Dosage: 6 G, QD
     Route: 042
  3. GENTAMICIN. [Concomitant]
     Active Substance: GENTAMICIN
     Indication: ENDOCARDITIS STAPHYLOCOCCAL
     Dosage: 500 MG, QD
     Route: 065
  4. DAPTOMYCIN. [Concomitant]
     Active Substance: DAPTOMYCIN
     Indication: ENDOCARDITIS STAPHYLOCOCCAL
     Route: 065

REACTIONS (6)
  - Cardiac tamponade [Not Recovered/Not Resolved]
  - Hypovitaminosis [Recovered/Resolved]
  - Hypoprothrombinaemia [Recovered/Resolved]
  - Multiple organ dysfunction syndrome [Fatal]
  - Shock [Not Recovered/Not Resolved]
  - Vitamin K deficiency [Recovered/Resolved]
